FAERS Safety Report 24996227 (Version 1)
Quarter: 2025Q1

REPORT INFORMATION
  Report Type: Spontaneous
  Country: US (occurrence: US)
  Receive Date: 20250221
  Receipt Date: 20250221
  Transmission Date: 20250409
  Serious: Yes (Other)
  Sender: BRACCO
  Company Number: US-BRACCO-2025US00996

PATIENT
  Age: 77 Year
  Sex: Female

DRUGS (1)
  1. ISOVUE 370 [Suspect]
     Active Substance: IOPAMIDOL
     Indication: Diagnostic procedure
     Route: 042
     Dates: start: 20250211, end: 20250211

REACTIONS (3)
  - Air embolism [Recovered/Resolved]
  - Electrocardiogram ST segment elevation [Recovered/Resolved]
  - Heart rate decreased [Recovered/Resolved]

NARRATIVE: CASE EVENT DATE: 20250211
